FAERS Safety Report 7531606-9 (Version None)
Quarter: 2011Q2

REPORT INFORMATION
  Report Type: 
  Country: None (occurrence: None)
  Receive Date: 20110607
  Receipt Date: 20110607
  Transmission Date: 20111010
  Serious: No
  Sender: FDA-Public Use
  Company Number: None

PATIENT
  Sex: Female
  Weight: 73.4827 kg

DRUGS (1)
  1. FEXOFENADINE [Suspect]
     Indication: RHINITIS ALLERGIC
     Dosage: 1 TABLET DAILY PO
     Route: 048
     Dates: start: 20110519, end: 20110602

REACTIONS (2)
  - PRODUCT SUBSTITUTION ISSUE [None]
  - DRUG INEFFECTIVE [None]
